FAERS Safety Report 11227167 (Version 2)
Quarter: 2015Q3

REPORT INFORMATION
  Report Type: Spontaneous
  Country: JP (occurrence: JP)
  Receive Date: 20150630
  Receipt Date: 20150716
  Transmission Date: 20151125
  Serious: Yes (Hospitalization)
  Sender: FDA-Public Use
  Company Number: JP-ROCHE-1600436

PATIENT
  Sex: Female

DRUGS (7)
  1. LUCENTIS [Suspect]
     Active Substance: RANIBIZUMAB
     Indication: RETINAL VEIN OCCLUSION
     Route: 031
     Dates: start: 20150513
  2. CARNACULIN [Concomitant]
     Active Substance: KALLIDINOGENASE
     Indication: RETINAL VASCULAR DISORDER
     Route: 048
     Dates: start: 20150203
  3. ADONA (JAPAN) [Concomitant]
     Indication: RETINAL VASCULAR DISORDER
     Route: 048
     Dates: start: 20150203
  4. LUCENTIS [Suspect]
     Active Substance: RANIBIZUMAB
     Indication: MACULAR OEDEMA
  5. CILOSTAZOL. [Concomitant]
     Active Substance: CILOSTAZOL
     Route: 065
     Dates: start: 20150615
  6. BESTRON FOR EAR AND NOSE [Concomitant]
     Route: 065
     Dates: start: 20150509, end: 20150516
  7. CRAVIT [Concomitant]
     Active Substance: LEVOFLOXACIN
     Route: 065
     Dates: start: 20150509, end: 20150516

REACTIONS (1)
  - Cerebral infarction [Recovering/Resolving]
